FAERS Safety Report 20174542 (Version 4)
Quarter: 2022Q2

REPORT INFORMATION
  Report Type: Report from Study
  Country: ES (occurrence: ES)
  Receive Date: 20211213
  Receipt Date: 20220603
  Transmission Date: 20220721
  Serious: Yes (Life-Threatening, Other)
  Sender: FDA-Public Use
  Company Number: ES-AMGEN-ESPCT2021195271

PATIENT
  Age: 66 Year
  Sex: Male
  Weight: 90 kg

DRUGS (10)
  1. PANITUMUMAB [Suspect]
     Active Substance: PANITUMUMAB
     Indication: Colorectal cancer metastatic
     Dosage: 610 MILLIGRAM, Q2WK
     Route: 042
     Dates: start: 20200218
  2. PANITUMUMAB [Suspect]
     Active Substance: PANITUMUMAB
     Dosage: 330 MILLIGRAM, Q2WK
     Route: 042
     Dates: end: 20200727
  3. OXALIPLATIN [Suspect]
     Active Substance: OXALIPLATIN
     Indication: Colorectal cancer metastatic
     Dosage: 180 MILLIGRAM, Q2WK
     Route: 042
     Dates: start: 20200218
  4. OXALIPLATIN [Suspect]
     Active Substance: OXALIPLATIN
     Dosage: 100 MILLIGRAM, Q2WK
     Route: 042
     Dates: end: 20200630
  5. LEUCOVORIN [Suspect]
     Active Substance: LEUCOVORIN
     Indication: Colorectal cancer metastatic
     Dosage: 860 MILLIGRAM, Q2WK
     Route: 042
     Dates: start: 20200218
  6. LEUCOVORIN [Suspect]
     Active Substance: LEUCOVORIN
     Dosage: 840 MILLIGRAM, Q2WK
     Route: 042
     Dates: end: 20200511
  7. FLUOROURACIL [Suspect]
     Active Substance: FLUOROURACIL
     Indication: Colorectal cancer metastatic
     Dosage: 5200 MILLIGRAM, Q2WK
     Route: 041
     Dates: start: 20200218
  8. FLUOROURACIL [Suspect]
     Active Substance: FLUOROURACIL
     Dosage: 4900 MILLIGRAM, Q2WK
     Route: 041
     Dates: end: 20200811
  9. FLUOROURACIL [Suspect]
     Active Substance: FLUOROURACIL
     Dosage: 860 MILLIGRAM, Q2WK
     Route: 040
     Dates: start: 20200218
  10. FLUOROURACIL [Suspect]
     Active Substance: FLUOROURACIL
     Dosage: 820 MILLIGRAM, Q2WK
     Route: 040
     Dates: end: 20200811

REACTIONS (1)
  - Acute monocytic leukaemia [Unknown]

NARRATIVE: CASE EVENT DATE: 20210825
